FAERS Safety Report 7341015-3 (Version None)
Quarter: 2011Q1

REPORT INFORMATION
  Report Type: 
  Country: None (occurrence: None)
  Receive Date: 20110309
  Receipt Date: 20110304
  Transmission Date: 20110831
  Serious: Yes (Other)
  Sender: FDA-Public Use
  Company Number: A0916689A

PATIENT
  Age: 39 Year
  Sex: Female

DRUGS (1)
  1. ALLI [Suspect]
     Indication: WEIGHT LOSS DIET
     Route: 048

REACTIONS (10)
  - HUNGER [None]
  - DRUG EXPOSURE DURING PREGNANCY [None]
  - ABDOMINAL PAIN [None]
  - ABORTION SPONTANEOUS [None]
  - VAGINAL HAEMORRHAGE [None]
  - TREATMENT NONCOMPLIANCE [None]
  - ILL-DEFINED DISORDER [None]
  - WEIGHT INCREASED [None]
  - ABORTION MISSED [None]
  - RECTAL DISCHARGE [None]
